FAERS Safety Report 8427954-0 (Version None)
Quarter: 2012Q2

REPORT INFORMATION
  Report Type: 
  Country: None (occurrence: None)
  Receive Date: 20120611
  Receipt Date: 20120516
  Transmission Date: 20120825
  Serious: Yes (Hospitalization)
  Sender: FDA-Public Use
  Company Number: DE-B.I. PHARMACEUTICALS,INC./RIDGEFIELD-2012-DE-01132DE

PATIENT
  Sex: Male
  Weight: 84 kg

DRUGS (1)
  1. MICARDIS [Suspect]
     Indication: HYPERTONIA
     Route: 048
     Dates: start: 19960101

REACTIONS (3)
  - ANXIETY [None]
  - DEPRESSED MOOD [None]
  - PANIC ATTACK [None]
